FAERS Safety Report 25456122 (Version 1)
Quarter: 2025Q2

REPORT INFORMATION
  Report Type: Spontaneous
  Country: US (occurrence: US)
  Receive Date: 20250619
  Receipt Date: 20250619
  Transmission Date: 20250717
  Serious: Yes (Other)
  Sender: TEVA
  Company Number: US-TEVA-VS-3340272

PATIENT
  Age: 19 Year
  Sex: Female

DRUGS (1)
  1. METOCLOPRAMIDE [Suspect]
     Active Substance: METOCLOPRAMIDE
     Indication: Oesophageal motility disorder
     Route: 048

REACTIONS (3)
  - Movement disorder [Unknown]
  - Adverse drug reaction [Unknown]
  - Recalled product administered [Unknown]
